FAERS Safety Report 9549621 (Version 1)
Quarter: 2013Q3

REPORT INFORMATION
  Report Type: Report from Study
  Country: US (occurrence: US)
  Receive Date: 20130924
  Receipt Date: 20130924
  Transmission Date: 20140515
  Serious: Yes (Hospitalization)
  Sender: FDA-Public Use
  Company Number: US-PFIZER INC-2013272364

PATIENT
  Age: 6 Year
  Sex: Female

DRUGS (3)
  1. PHENYTOIN [Suspect]
     Indication: STATUS EPILEPTICUS
     Dosage: UNK
  2. DIAZEPAM [Suspect]
     Indication: STATUS EPILEPTICUS
     Dosage: UNK
  3. PHENOBARBITAL [Suspect]
     Indication: STATUS EPILEPTICUS
     Dosage: UNK

REACTIONS (2)
  - Drug ineffective [Recovered/Resolved]
  - Intracranial pressure increased [Recovered/Resolved]
